FAERS Safety Report 9632516 (Version 3)
Quarter: 2013Q4

REPORT INFORMATION
  Report Type: Report from Study
  Country: CA (occurrence: CA)
  Receive Date: 20131018
  Receipt Date: 20131115
  Transmission Date: 20140711
  Serious: Yes (Hospitalization, Disabling)
  Sender: FDA-Public Use
  Company Number: CA-ABBVIE-13P-028-1156515-00

PATIENT
  Age: 30 Year
  Sex: Male
  Weight: 57 kg

DRUGS (3)
  1. HUMIRA [Suspect]
     Indication: COLITIS ULCERATIVE
     Route: 058
     Dates: start: 20091021, end: 20130916
  2. HUMIRA [Suspect]
     Route: 058
     Dates: start: 20131015
  3. PENTASA [Concomitant]
     Indication: COLITIS ULCERATIVE
     Route: 048
     Dates: start: 20130829

REACTIONS (3)
  - Colitis ulcerative [Recovered/Resolved]
  - Erythema nodosum [Recovered/Resolved]
  - Sinusitis [Recovered/Resolved]
